FAERS Safety Report 25941942 (Version 1)
Quarter: 2025Q4

REPORT INFORMATION
  Report Type: Spontaneous
  Country: MY (occurrence: MY)
  Receive Date: 20251020
  Receipt Date: 20251020
  Transmission Date: 20260117
  Serious: Yes (Hospitalization)
  Sender: EISAI
  Company Number: MY-Eisai-EC-2025-198458

PATIENT
  Sex: Female

DRUGS (2)
  1. LENVIMA [Suspect]
     Active Substance: LENVATINIB
     Indication: Product used for unknown indication
     Route: 048
  2. LENVIMA [Suspect]
     Active Substance: LENVATINIB
     Route: 048

REACTIONS (1)
  - Gastric haemorrhage [Recovered/Resolved]
